FAERS Safety Report 9907947 (Version 2)
Quarter: 2014Q3

REPORT INFORMATION
  Report Type: Spontaneous
  Country: ES (occurrence: ES)
  Receive Date: 20140219
  Receipt Date: 20140716
  Transmission Date: 20150326
  Serious: Yes (Death, Hospitalization, Other)
  Sender: FDA-Public Use
  Company Number: ES-ALEXION PHARMACEUTICALS INC.-A201400433

PATIENT
  Sex: Male

DRUGS (1)
  1. SOLIRIS [Suspect]
     Active Substance: ECULIZUMAB
     Indication: HAEMOLYTIC URAEMIC SYNDROME
     Dosage: 900 MG, QW
     Route: 042
     Dates: start: 20140109, end: 20140127

REACTIONS (6)
  - Sepsis [Unknown]
  - Respiratory tract infection [Unknown]
  - Death [Fatal]
  - Disease progression [Not Recovered/Not Resolved]
  - Intestinal haemorrhage [Unknown]
  - Hepatitis C [Unknown]
